FAERS Safety Report 18984900 (Version 1)
Quarter: 2021Q1

REPORT INFORMATION
  Report Type: Report from Study
  Country: CA (occurrence: CA)
  Receive Date: 20210309
  Receipt Date: 20210309
  Transmission Date: 20210420
  Serious: Yes (Other)
  Sender: FDA-Public Use
  Company Number: CA-TEVA-2021-CA-1887263

PATIENT
  Age: 37 Year
  Sex: Female

DRUGS (1)
  1. AJOVY [Suspect]
     Active Substance: FREMANEZUMAB-VFRM
     Indication: MIGRAINE PROPHYLAXIS
     Dosage: LAST INJECTION DATE: 30?NOV?2020
     Route: 058
     Dates: start: 20200920

REACTIONS (2)
  - Brain injury [Not Recovered/Not Resolved]
  - Inappropriate schedule of product administration [Unknown]
